FAERS Safety Report 6253320-2 (Version None)
Quarter: 2009Q3

REPORT INFORMATION
  Report Type: 
  Country: None (occurrence: None)
  Receive Date: 20090701
  Receipt Date: 20090629
  Transmission Date: 20100115
  Serious: No
  Sender: FDA-Public Use
  Company Number: US-B.I. PHARMACEUTICALS,INC./RIDGEFIELD-2009-BP-07784BP

PATIENT

DRUGS (1)
  1. MIRAPEX [Suspect]
     Dates: start: 20090601

REACTIONS (1)
  - INITIAL INSOMNIA [None]
